FAERS Safety Report 5801229-8 (Version None)
Quarter: 2008Q3

REPORT INFORMATION
  Report Type: 
  Country: None (occurrence: None)
  Receive Date: 20080703
  Receipt Date: 20080703
  Transmission Date: 20090109
  Serious: Yes (Death, Life-Threatening, Disabling, Other)
  Sender: FDA-Public Use
  Company Number: None

PATIENT
  Sex: Female

DRUGS (3)
  1. KETOCONAZOLE [Suspect]
     Indication: FUNGAL INFECTION
     Dosage: RX#200 POTAB 4039
     Dates: start: 19550109
  2. NAPROXEN [Suspect]
     Indication: ARTHRITIS
     Dosage: RX#6893236 4039
  3. THICK IRON NAIL WITH BEND CONTAMINATION [Concomitant]

REACTIONS (4)
  - ABNORMAL BEHAVIOUR [None]
  - HOMICIDE [None]
  - HOMOSEXUALITY [None]
  - THEFT [None]
